FAERS Safety Report 9263842 (Version 2)
Quarter: 2013Q3

REPORT INFORMATION
  Report Type: Spontaneous
  Country: US (occurrence: US)
  Receive Date: 20130430
  Receipt Date: 20130805
  Transmission Date: 20140515
  Serious: No
  Sender: FDA-Public Use
  Company Number: US-PFIZER INC-2013130221

PATIENT
  Sex: Female

DRUGS (3)
  1. CHANTIX [Suspect]
     Indication: SMOKING CESSATION THERAPY
     Dosage: 1 MG, 2X/DAY
     Dates: start: 20130411, end: 2013
  2. SYNTHROID [Concomitant]
     Dosage: 75 MG, 1X/DAY
  3. KLONOPIN [Concomitant]
     Dosage: 1 MG, 2X/DAY, AS NEEDED

REACTIONS (5)
  - Nausea [Unknown]
  - Headache [Unknown]
  - Dizziness [Unknown]
  - Night sweats [Unknown]
  - Abnormal dreams [Unknown]
